FAERS Safety Report 22250340 (Version 1)
Quarter: 2023Q2

REPORT INFORMATION
  Report Type: Spontaneous
  Country: FR (occurrence: FR)
  Receive Date: 20230425
  Receipt Date: 20230425
  Transmission Date: 20230722
  Serious: Yes (Death, Other)
  Sender: FDA-Public Use
  Company Number: FR-AMGEN-FRASP2023067154

PATIENT

DRUGS (2)
  1. TRASTUZUMAB [Suspect]
     Active Substance: TRASTUZUMAB
     Indication: Breast cancer
     Dosage: 600 MILLIGRAM
     Route: 058
  2. PERTUZUMAB [Concomitant]
     Active Substance: PERTUZUMAB
     Indication: Breast cancer
     Dosage: 420 MILLIGRAM OVER 30 MINUTE (MAINTENANCE DOSE)
     Route: 042

REACTIONS (21)
  - Breast cancer [Fatal]
  - Neurotoxicity [Unknown]
  - Injection site pain [Unknown]
  - Musculoskeletal stiffness [Unknown]
  - Malnutrition [Unknown]
  - Mucosal disorder [Unknown]
  - Skin disorder [Unknown]
  - Off label use [Unknown]
  - Gastrointestinal disorder [Unknown]
  - Vertigo [Unknown]
  - Myalgia [Unknown]
  - Asthenia [Unknown]
  - Diarrhoea [Unknown]
  - Constipation [Unknown]
  - Nausea [Unknown]
  - Muscle spasms [Unknown]
  - Back pain [Unknown]
  - Arthralgia [Unknown]
  - Epistaxis [Unknown]
  - Hot flush [Unknown]
  - Rhinitis [Unknown]
